FAERS Safety Report 14901309 (Version 3)
Quarter: 2018Q2

REPORT INFORMATION
  Report Type: Spontaneous
  Country: CN (occurrence: CN)
  Receive Date: 20180516
  Receipt Date: 20180620
  Transmission Date: 20180711
  Serious: Yes (Other)
  Sender: FDA-Public Use
  Company Number: CN-ABBVIE-18S-035-2353255-00

PATIENT
  Age: 14 Month
  Sex: Female
  Weight: 20 kg

DRUGS (4)
  1. DEPAKINE [Suspect]
     Active Substance: VALPROATE SODIUM
     Route: 065
     Dates: start: 20180503
  2. DEPAKINE [Suspect]
     Active Substance: VALPROATE SODIUM
     Indication: EPILEPSY
     Route: 048
     Dates: start: 201706
  3. DEPAKINE [Suspect]
     Active Substance: VALPROATE SODIUM
     Route: 065
  4. LEVETIRACETAM. [Concomitant]
     Active Substance: LEVETIRACETAM
     Indication: PRODUCT USED FOR UNKNOWN INDICATION
     Route: 065
     Dates: start: 201706

REACTIONS (8)
  - Bruxism [Recovering/Resolving]
  - Eye movement disorder [Recovering/Resolving]
  - Eye disorder [Unknown]
  - Mood altered [Recovering/Resolving]
  - Intentional product misuse [Unknown]
  - Epilepsy [Recovering/Resolving]
  - Muscle spasms [Recovering/Resolving]
  - Intentional product use issue [Unknown]

NARRATIVE: CASE EVENT DATE: 20180503
